FAERS Safety Report 9512180 (Version 1)
Quarter: 2013Q1

REPORT INFORMATION
  Report Type: Spontaneous
  Country: US (occurrence: None)
  Receive Date: 20130305
  Receipt Date: 20130305
  Transmission Date: 20140127
  Serious: Yes (Other)
  Sender: FDA-Public Use
  Company Number: 163-21880-12051505

PATIENT
  Age: 77 Year
  Sex: Female
  Weight: 75.3 kg

DRUGS (7)
  1. REVLIMID [Suspect]
     Indication: 5Q MINUS SYNDROME
     Dosage: 10 MG, 1 IN 1 D, PO
     Route: 048
     Dates: start: 201202
  2. UV THERAPY [Suspect]
     Indication: RASH
     Dosage: 3X A WEEK MON., WED., AND FRIDAY, UNK
  3. BENICAR (OLMESARTAN MEDOXOMIL) [Concomitant]
  4. DETROL LA (TOLTERODINE L-TARTRATE) [Concomitant]
  5. NEXIUM [Concomitant]
  6. METOPROLOL (METOPROLOL) [Concomitant]
  7. VITAMIN B12 (CYANCOBALAMIN) [Concomitant]

REACTIONS (1)
  - Dermatitis [None]
